FAERS Safety Report 6406273-8 (Version None)
Quarter: 2009Q4

REPORT INFORMATION
  Report Type: 
  Country: None (occurrence: None)
  Receive Date: 20091019
  Receipt Date: 20091006
  Transmission Date: 20100525
  Serious: Yes (Other)
  Sender: FDA-Public Use
  Company Number: PHHY2009ES38400

PATIENT
  Age: 77 Year
  Sex: Male

DRUGS (3)
  1. ACLASTA [Suspect]
     Indication: OSTEITIS DEFORMANS
     Dosage: 5 MG, UNK
     Route: 042
     Dates: start: 20071001
  2. DICLOFENAC SODIUM [Concomitant]
     Indication: OSTEOARTHRITIS
  3. ENANTYUM [Concomitant]
     Indication: OSTEOARTHRITIS

REACTIONS (3)
  - BONE OPERATION [None]
  - OSTEONECROSIS [None]
  - SCAR [None]
